FAERS Safety Report 10874155 (Version 4)
Quarter: 2015Q1

REPORT INFORMATION
  Report Type: Spontaneous
  Country: US (occurrence: US)
  Receive Date: 20150227
  Receipt Date: 20150320
  Transmission Date: 20150721
  Serious: Yes (Other)
  Sender: FDA-Public Use
  Company Number: US-JNJFOC-20150219197

PATIENT
  Sex: Male

DRUGS (1)
  1. EVARREST [Suspect]
     Active Substance: FIBRINOGEN HUMAN\THROMBIN HUMAN
     Indication: STAB WOUND
     Route: 061

REACTIONS (3)
  - Product quality issue [Unknown]
  - Abdominal abscess [Unknown]
  - Off label use [Unknown]
